FAERS Safety Report 9809046 (Version 1)
Quarter: 2014Q1

REPORT INFORMATION
  Report Type: Report from Study
  Country: US (occurrence: US)
  Receive Date: 20140110
  Receipt Date: 20140110
  Transmission Date: 20141002
  Serious: Yes (Other)
  Sender: FDA-Public Use
  Company Number: PHHO2013US017016

PATIENT
  Sex: Female

DRUGS (4)
  1. AFINITOR [Suspect]
     Indication: ENDOMETRIAL CANCER
     Dosage: 10 MG, QD
     Route: 048
     Dates: start: 20131104, end: 20131219
  2. CGS 20267 [Suspect]
     Indication: ENDOMETRIAL CANCER
     Dosage: 2.5 MG, QD
     Route: 048
     Dates: start: 20131104, end: 20131219
  3. METFORMIN [Suspect]
     Dosage: 500 MG, QD
     Route: 048
     Dates: start: 20131028, end: 20131031
  4. METFORMIN [Suspect]
     Dosage: 500 MG, BID
     Route: 048
     Dates: start: 20131101, end: 20131219

REACTIONS (3)
  - Infection [Unknown]
  - Anaemia [Unknown]
  - Fatigue [Unknown]
